FAERS Safety Report 7814103-2 (Version None)
Quarter: 2011Q4

REPORT INFORMATION
  Report Type: 
  Country: None (occurrence: None)
  Receive Date: 20111014
  Receipt Date: 20111006
  Transmission Date: 20120403
  Serious: Yes (Other)
  Sender: FDA-Public Use
  Company Number: JP-ASTELLAS-2011JP007040

PATIENT
  Age: 86 Year
  Sex: Male

DRUGS (5)
  1. NORVASC [Concomitant]
     Dosage: 5 MG, UNKNOWN/D
     Route: 048
  2. ARGAMATE [Concomitant]
     Route: 048
  3. CIBENOL [Suspect]
     Dosage: 50 MG, UNKNOWN/D
     Route: 048
  4. VESICARE [Suspect]
     Dosage: 5 MG, UNKNOWN/D
     Route: 048
  5. LOSARTAN POTASSIUM [Concomitant]
     Dosage: 50 MG, UNKNOWN/D
     Route: 048

REACTIONS (1)
  - CARDIAC FAILURE [None]
